FAERS Safety Report 7286842-6 (Version None)
Quarter: 2011Q1

REPORT INFORMATION
  Report Type: 
  Country: None (occurrence: None)
  Receive Date: 20110210
  Receipt Date: 20110204
  Transmission Date: 20110831
  Serious: Yes (Death, Hospitalization)
  Sender: FDA-Public Use
  Company Number: FI-BRISTOL-MYERS SQUIBB COMPANY-15468994

PATIENT
  Age: 26 Year
  Sex: Male

DRUGS (6)
  1. SIMVASTATIN [Concomitant]
  2. LANTUS [Concomitant]
  3. ABILIFY [Suspect]
     Dosage: INITIAL DOSE-15MG,DOSE INCR TO 25MG AND REDUCED TO 10MG DAILY(LAST WEEK)
  4. ZOLOFT [Concomitant]
  5. RAMIPRIL [Concomitant]
  6. SUBOXONE [Concomitant]

REACTIONS (4)
  - DEATH [None]
  - PARKINSONISM [None]
  - AGGRESSION [None]
  - RESTLESSNESS [None]
